FAERS Safety Report 8757055 (Version 2)
Quarter: 2012Q4

REPORT INFORMATION
  Report Type: 
  Country: US (occurrence: US)
  Receive Date: 20120828
  Receipt Date: 20121107
  Transmission Date: 20130627
  Serious: Yes (Death, Hospitalization, Other)
  Sender: FDA-Public Use
  Company Number: US-PFIZER INC-2012206454

PATIENT
  Age: 87 Year
  Sex: Male
  Weight: 72.56 kg

DRUGS (2)
  1. REVATIO [Suspect]
     Indication: ARTERIAL PRESSURE HIGH
     Dosage: 20 mg, 3x/day
     Route: 048
     Dates: start: 2008
  2. REVATIO [Suspect]
     Indication: CHRONIC OBSTRUCTIVE PULMONARY DISEASE

REACTIONS (5)
  - Multi-organ failure [Fatal]
  - Respiratory failure [Fatal]
  - Renal failure [Fatal]
  - Cardiac failure congestive [Fatal]
  - Pneumonia [Fatal]
